FAERS Safety Report 9431990 (Version 3)
Quarter: 2013Q4

REPORT INFORMATION
  Report Type: Spontaneous
  Country: GB (occurrence: None)
  Receive Date: 20130726
  Receipt Date: 20131112
  Transmission Date: 20140711
  Serious: Yes (Hospitalization, Other)
  Sender: FDA-Public Use
  Company Number: AUR-APL-2013-05804

PATIENT
  Age: 51 Year
  Sex: 0

DRUGS (7)
  1. AMOXICILLIN+CLAVULANIC ACID [Suspect]
     Indication: PNEUMONIA PNEUMOCOCCAL
     Dosage: 1875 MG (625 MG, 3 IN 1 D), ORAL
     Route: 048
     Dates: start: 20110526, end: 20110601
  2. PIPERACILLIN+TAZOBACTAM [Suspect]
     Indication: PRODUCT USED FOR UNKNOWN INDICATION
     Route: 041
     Dates: start: 20110607
  3. BENZYLPENICILLIN [Suspect]
     Indication: PNEUMONIA
     Route: 041
     Dates: start: 20110518, end: 20110520
  4. CLARITHROMYCIN [Suspect]
     Indication: PNEUMONIA PNEUMOCOCCAL
     Route: 041
     Dates: start: 20110519, end: 20110525
  5. LEVOFLOXACIN [Suspect]
     Indication: PNEUMONIA
     Dosage: 1000 MG (500 MG, 2 IN 1 D), ORAL
     Route: 048
     Dates: start: 20110526, end: 20110602
  6. CO-AMOXICLAV [Suspect]
     Indication: PNEUMONIA PNEUMOCOCCAL
     Route: 041
     Dates: start: 20110521, end: 20110525
  7. LEVOFLOXACIN [Suspect]
     Indication: PNEUMONIA
     Route: 042
     Dates: start: 20110519, end: 20110520

REACTIONS (2)
  - Clostridium difficile infection [None]
  - Respiratory arrest [None]
